FAERS Safety Report 11105721 (Version 2)
Quarter: 2015Q3

REPORT INFORMATION
  Report Type: Spontaneous
  Country: CA (occurrence: CA)
  Receive Date: 20150512
  Receipt Date: 20150924
  Transmission Date: 20151125
  Serious: Yes (Other)
  Sender: FDA-Public Use
  Company Number: CA-ROCHE-1516332

PATIENT
  Age: 69 Year
  Sex: Female

DRUGS (14)
  1. XOLAIR [Suspect]
     Active Substance: OMALIZUMAB
     Route: 058
     Dates: start: 20141223
  2. FLOVENT [Concomitant]
     Active Substance: FLUTICASONE PROPIONATE
  3. VENTOLIN [Concomitant]
     Active Substance: ALBUTEROL SULFATE
  4. ALVESCO [Concomitant]
     Active Substance: CICLESONIDE
  5. XOLAIR [Suspect]
     Active Substance: OMALIZUMAB
     Route: 058
     Dates: start: 20090430
  6. BRICANYL [Concomitant]
     Active Substance: TERBUTALINE SULFATE
  7. THEO-DUR [Concomitant]
     Active Substance: THEOPHYLLINE ANHYDROUS
  8. XYZAL [Concomitant]
     Active Substance: LEVOCETIRIZINE DIHYDROCHLORIDE
  9. SYMBICORT [Concomitant]
     Active Substance: BUDESONIDE\FORMOTEROL FUMARATE DIHYDRATE
  10. XOLAIR [Suspect]
     Active Substance: OMALIZUMAB
     Indication: ASTHMA
     Route: 058
     Dates: start: 20080724
  11. XOLAIR [Suspect]
     Active Substance: OMALIZUMAB
     Route: 058
     Dates: start: 20080820
  12. SINGULAIR [Concomitant]
     Active Substance: MONTELUKAST SODIUM
  13. ADVAIR HFA [Concomitant]
     Active Substance: FLUTICASONE PROPIONATE\SALMETEROL XINAFOATE
  14. XOLAIR [Suspect]
     Active Substance: OMALIZUMAB
     Route: 058
     Dates: start: 20150121

REACTIONS (11)
  - Renal cancer [Unknown]
  - Malaise [Unknown]
  - Productive cough [Unknown]
  - Cough [Unknown]
  - Fatigue [Unknown]
  - Bronchitis [Recovered/Resolved]
  - Sputum discoloured [Unknown]
  - Depression [Unknown]
  - Blood pressure systolic increased [Not Recovered/Not Resolved]
  - Dyspnoea [Unknown]
  - Weight decreased [Unknown]

NARRATIVE: CASE EVENT DATE: 2014
